FAERS Safety Report 4613538-9 (Version None)
Quarter: 2005Q1

REPORT INFORMATION
  Report Type: 
  Country: None (occurrence: None)
  Receive Date: 20050318
  Receipt Date: 20050318
  Transmission Date: 20050727
  Serious: Yes (Hospitalization)
  Sender: FDA-Public Use
  Company Number: None

PATIENT
  Age: 24 Year
  Sex: Male
  Weight: 70 kg

DRUGS (5)
  1. NAPROXEN [Suspect]
     Indication: BACK PAIN
     Dosage: 500 MG I BID
     Dates: start: 20041018, end: 20041117
  2. AMITRIPTYLINE HCL [Concomitant]
  3. CYCLOBENZAPRINE HCL [Concomitant]
  4. NAPROXEN [Concomitant]
  5. VALPROIC ACID [Concomitant]

REACTIONS (1)
  - NEPHRITIS INTERSTITIAL [None]
